FAERS Safety Report 5742939-0 (Version None)
Quarter: 2008Q2

REPORT INFORMATION
  Report Type: 
  Country: None (occurrence: None)
  Receive Date: 20080515
  Receipt Date: 20080515
  Transmission Date: 20081010
  Serious: Yes (Death)
  Sender: FDA-Public Use
  Company Number: None

PATIENT
  Age: 89 Year
  Sex: Female
  Weight: 49.8957 kg

DRUGS (1)
  1. DIGITEK 250 MCG -0.25MG- AMIDE PHARMACEUTICAL INC. [Suspect]
     Indication: CARDIAC DISORDER
     Dosage: ONE TABLET DAILY PO
     Route: 048
     Dates: start: 20071210, end: 20080505

REACTIONS (5)
  - ASTHENIA [None]
  - BLOOD PRESSURE DECREASED [None]
  - CARDIAC ARREST [None]
  - PHARMACEUTICAL PRODUCT COMPLAINT [None]
  - UNRESPONSIVE TO STIMULI [None]
